FAERS Safety Report 8609736-X (Version None)
Quarter: 2012Q3

REPORT INFORMATION
  Report Type: 
  Country: None (occurrence: None)
  Receive Date: 20120821
  Receipt Date: 20120817
  Transmission Date: 20120928
  Serious: Yes (Hospitalization, Other)
  Sender: FDA-Public Use
  Company Number: US-PFIZER INC-2012202600

PATIENT
  Age: 61 Year
  Sex: Male
  Weight: 78.458 kg

DRUGS (9)
  1. ASPIRIN [Suspect]
     Dosage: UNK
  2. FENTANYL [Concomitant]
     Indication: PAIN
     Dosage: 15 MG, UNK
  3. OXYCODONE [Concomitant]
     Indication: PAIN
     Dosage: 15 MG, 2X/DAY
  4. TYLENOL [Suspect]
     Dosage: UNK
  5. LASIX [Suspect]
     Indication: OEDEMA
     Dosage: 40-80MG DAILY
     Route: 048
  6. SPIRONOLACTONE [Concomitant]
     Dosage: UNK
  7. CHANTIX [Suspect]
     Indication: SMOKING CESSATION THERAPY
     Dosage: 0.5 MG, DAILY
     Route: 048
     Dates: start: 20080701, end: 20080101
  8. CHANTIX [Suspect]
     Dosage: 0.5 MG, DAILY
     Route: 048
     Dates: start: 20120701
  9. FLOMAX [Concomitant]
     Dosage: UNK

REACTIONS (9)
  - INTENTIONAL DRUG MISUSE [None]
  - ABASIA [None]
  - GASTRIC FISTULA [None]
  - TOE AMPUTATION [None]
  - ABDOMINAL PAIN UPPER [None]
  - HERNIA [None]
  - DRUG HYPERSENSITIVITY [None]
  - ARTHRITIS INFECTIVE [None]
  - HYPOTENSION [None]
